FAERS Safety Report 7138742-X (Version None)
Quarter: 2010Q4

REPORT INFORMATION
  Report Type: 
  Country: None (occurrence: None)
  Receive Date: 20101122
  Receipt Date: 20101108
  Transmission Date: 20110411
  Serious: Yes (Death)
  Sender: FDA-Public Use
  Company Number: 2010P1002460

PATIENT
  Age: 7 Year
  Sex: Male

DRUGS (1)
  1. FENTANYL [Suspect]
     Indication: INTENTIONAL DRUG MISUSE

REACTIONS (2)
  - INTENTIONAL DRUG MISUSE [None]
  - OFF LABEL USE [None]
